FAERS Safety Report 9253943 (Version 3)
Quarter: 2014Q1

REPORT INFORMATION
  Report Type: Spontaneous
  Country: US (occurrence: US)
  Receive Date: 20130425
  Receipt Date: 20140115
  Transmission Date: 20141002
  Serious: Yes (Hospitalization, Disabling)
  Sender: FDA-Public Use
  Company Number: US-ASTRAZENECA-2013SE27431

PATIENT
  Age: 50 Year
  Sex: Female

DRUGS (25)
  1. NEXIUM [Suspect]
     Indication: LARYNGEAL DISORDER
     Dosage: TWO TIMES A DAY
     Route: 048
     Dates: start: 1977, end: 2009
  2. NEXIUM [Suspect]
     Indication: GASTROOESOPHAGEAL REFLUX DISEASE
     Dosage: TWO TIMES A DAY
     Route: 048
     Dates: start: 1977, end: 2009
  3. NEXIUM [Suspect]
     Indication: LARYNGEAL DISORDER
     Route: 048
     Dates: start: 20030421
  4. NEXIUM [Suspect]
     Indication: GASTROOESOPHAGEAL REFLUX DISEASE
     Route: 048
     Dates: start: 20030421
  5. NEXIUM [Suspect]
     Indication: LARYNGEAL DISORDER
     Route: 048
     Dates: start: 20040728
  6. NEXIUM [Suspect]
     Indication: GASTROOESOPHAGEAL REFLUX DISEASE
     Route: 048
     Dates: start: 20040728
  7. TUMS [Concomitant]
  8. PEPTO-BISMOL [Concomitant]
     Indication: GASTROINTESTINAL DISORDER
  9. SOMA [Concomitant]
     Indication: MUSCLE SPASMS
  10. LYRICA [Concomitant]
     Indication: NEURALGIA
  11. LYRICA [Concomitant]
     Indication: MUSCLE SPASMS
  12. ZANAFLEX [Concomitant]
  13. ULTRAM [Concomitant]
  14. PRILOSEC [Concomitant]
  15. FLUOXETINE HCL [Concomitant]
     Dates: start: 20040902
  16. FLUDROCORTISONE [Concomitant]
     Dates: start: 20040917
  17. DIAZEPAM [Concomitant]
     Dates: start: 20041023
  18. EFFEXOR XR [Concomitant]
     Dates: start: 20041110
  19. PHENTERMINE [Concomitant]
     Dates: start: 20040602
  20. HYDROCHLOROTHIAZIDE [Concomitant]
     Dates: start: 20050706
  21. PIROXICAM [Concomitant]
     Dates: start: 20051116
  22. HYDROCODONE/APAP [Concomitant]
     Dosage: 10-650 MG
     Dates: start: 20051213
  23. FEXOFENADINE [Concomitant]
     Dates: start: 20060912
  24. ALPRAZOLAM [Concomitant]
     Dates: start: 20060918
  25. GABAPENTIN [Concomitant]
     Dates: start: 20061020

REACTIONS (27)
  - Arthritis [Unknown]
  - Uterine dilation and curettage [Unknown]
  - Fall [Unknown]
  - Nephrolithiasis [Unknown]
  - Joint injury [Unknown]
  - Arthropathy [Unknown]
  - Spinal osteoarthritis [Unknown]
  - Back pain [Unknown]
  - Osteoporosis [Unknown]
  - Bone density decreased [Unknown]
  - Calcium deficiency [Unknown]
  - Multiple fractures [Unknown]
  - Cataract [Unknown]
  - Cardiovascular disorder [Unknown]
  - Diabetes mellitus [Unknown]
  - Rheumatoid arthritis [Unknown]
  - Vitamin D deficiency [Unknown]
  - Nervous system disorder [Unknown]
  - Rotator cuff syndrome [Unknown]
  - Bursitis [Unknown]
  - Osteoarthritis [Unknown]
  - Scoliosis [Unknown]
  - Lumbar spinal stenosis [Unknown]
  - Intervertebral disc protrusion [Unknown]
  - Exostosis [Unknown]
  - Foot fracture [Unknown]
  - Depression [Unknown]
